FAERS Safety Report 17132437 (Version 4)
Quarter: 2020Q2

REPORT INFORMATION
  Report Type: Report from Study
  Country: None (occurrence: US)
  Receive Date: 20191210
  Receipt Date: 20200530
  Transmission Date: 20200713
  Serious: Yes (Hospitalization, Other)
  Sender: FDA-Public Use
  Company Number: US-ABBVIE-19K-163-3179999-00

PATIENT
  Age: 58 Year
  Sex: Female

DRUGS (1)
  1. HUMIRA [Suspect]
     Active Substance: ADALIMUMAB
     Indication: RHEUMATOID ARTHRITIS
     Dosage: CITRATE FREE
     Route: 058
     Dates: start: 201906

REACTIONS (14)
  - Reproductive tract disorder [Unknown]
  - Wrong technique in product usage process [Unknown]
  - Asthma [Recovering/Resolving]
  - Injection site pain [Not Recovered/Not Resolved]
  - Adverse food reaction [Unknown]
  - Abnormal faeces [Recovering/Resolving]
  - Renal failure [Unknown]
  - Immunodeficiency [Unknown]
  - Incorrect dose administered [Unknown]
  - Stress [Unknown]
  - Hypersensitivity [Recovering/Resolving]
  - Therapeutic response shortened [Unknown]
  - Device issue [Unknown]
  - Therapeutic response unexpected [Recovering/Resolving]

NARRATIVE: CASE EVENT DATE: 2019
